FAERS Safety Report 24179442 (Version 1)
Quarter: 2024Q3

REPORT INFORMATION
  Report Type: Spontaneous
  Country: US (occurrence: US)
  Receive Date: 20240806
  Receipt Date: 20240806
  Transmission Date: 20241017
  Serious: No
  Sender: PFIZER
  Company Number: US-PFIZER INC-PV202400100781

PATIENT
  Age: 42 Year
  Sex: Male

DRUGS (2)
  1. DESVENLAFAXINE SUCCINATE [Suspect]
     Active Substance: DESVENLAFAXINE SUCCINATE
     Dosage: 50 MG, ALTERNATE DAY
     Dates: start: 2020, end: 2024
  2. DESVENLAFAXINE SUCCINATE [Suspect]
     Active Substance: DESVENLAFAXINE SUCCINATE
     Dosage: 50 MG, DAILY
     Dates: start: 2024

REACTIONS (4)
  - Stress [Unknown]
  - Muscle twitching [Unknown]
  - Paraesthesia [Unknown]
  - Off label use [Unknown]
